FAERS Safety Report 25434760 (Version 1)
Quarter: 2025Q2

REPORT INFORMATION
  Report Type: Spontaneous
  Country: US (occurrence: None)
  Receive Date: 20250613
  Receipt Date: 20250613
  Transmission Date: 20250717
  Serious: Yes (unspecified)
  Sender: FDA-CTU
  Company Number: None

PATIENT
  Age: 64 Year
  Sex: Female

DRUGS (1)
  1. AUSTEDO XR [Suspect]
     Active Substance: DEUTETRABENAZINE
     Indication: Dyskinesia
     Dosage: 6MG ONCE A DAY ORAL
     Route: 048

REACTIONS (5)
  - Pain in extremity [None]
  - Fatigue [None]
  - Headache [None]
  - Nausea [None]
  - Musculoskeletal stiffness [None]
